FAERS Safety Report 10091700 (Version 2)
Quarter: 2014Q2

REPORT INFORMATION
  Report Type: Spontaneous
  Country: US (occurrence: US)
  Receive Date: 20140421
  Receipt Date: 20140421
  Transmission Date: 20141212
  Serious: No
  Sender: FDA-Public Use
  Company Number: US-GILEAD-2013-0067716

PATIENT
  Age: 0 Year
  Sex: Female

DRUGS (2)
  1. LETAIRIS [Suspect]
     Indication: CONNECTIVE TISSUE DISORDER
     Dosage: UNK
     Dates: start: 20110512
  2. LETAIRIS [Suspect]
     Indication: PULMONARY ARTERIAL HYPERTENSION

REACTIONS (1)
  - Dyspnoea [Not Recovered/Not Resolved]
